FAERS Safety Report 5554943-6 (Version None)
Quarter: 2007Q4

REPORT INFORMATION
  Report Type: 
  Country: None (occurrence: None)
  Receive Date: 20071213
  Receipt Date: 20071204
  Transmission Date: 20080405
  Serious: Yes (Other)
  Sender: FDA-Public Use
  Company Number: JP-ASTRAZENECA-2007AP07758

PATIENT
  Age: 71 Year
  Sex: Female
  Weight: 49 kg

DRUGS (12)
  1. ARIMIDEX [Suspect]
     Indication: BREAST CANCER
     Route: 048
     Dates: start: 20071010, end: 20071109
  2. RISPERDAL [Suspect]
     Indication: SCHIZOPHRENIA
     Route: 048
     Dates: start: 20070403
  3. NEOPERIDOL [Suspect]
     Indication: SCHIZOPHRENIA
     Route: 030
  4. VALERIN [Concomitant]
     Indication: MANIA
     Route: 048
     Dates: start: 20061031, end: 20071106
  5. MAGMITT [Concomitant]
     Indication: CONSTIPATION
     Route: 048
     Dates: start: 20070116, end: 20071106
  6. LORAZEPAM [Concomitant]
     Indication: SCHIZOPHRENIA
     Route: 048
     Dates: start: 20070403
  7. ALOSENN [Concomitant]
     Indication: CONSTIPATION
     Route: 048
     Dates: start: 20070710
  8. YODEL-S [Concomitant]
     Indication: CONSTIPATION
     Route: 048
  9. BIPERIDEN HYDROCHLORIDE TAB [Concomitant]
     Indication: PARKINSONISM
     Route: 048
  10. PROMETHAZINE [Concomitant]
     Indication: PARKINSONISM
     Route: 048
  11. GASCON [Concomitant]
     Indication: FLATULENCE
     Route: 048
  12. NITRAZEPAM [Concomitant]
     Indication: INSOMNIA
     Route: 048

REACTIONS (1)
  - PARKINSONISM [None]
